FAERS Safety Report 7137523-0 (Version None)
Quarter: 2010Q4

REPORT INFORMATION
  Report Type: 
  Country: None (occurrence: None)
  Receive Date: 20101206
  Receipt Date: 20090922
  Transmission Date: 20110411
  Serious: Yes (Death, Hospitalization)
  Sender: FDA-Public Use
  Company Number: US-ACTELION-A-US2009-28124

PATIENT

DRUGS (16)
  1. BOSENTAN TABLET 125 MG US [Suspect]
     Indication: PULMONARY ARTERIAL HYPERTENSION
     Dosage: 125 MG, BID
     Route: 048
  2. STARLIX [Concomitant]
  3. DIGOXIN [Concomitant]
  4. PROCRIT [Concomitant]
  5. XOPENEX [Concomitant]
  6. NAMENDA [Concomitant]
  7. CRESTOR [Concomitant]
  8. FERROUS FUMARATE [Concomitant]
  9. CELEBREX [Concomitant]
  10. WARFARIN SODIUM [Concomitant]
  11. FUROSEMIDE [Concomitant]
  12. FENOFIBRATE [Concomitant]
  13. DIOVAN [Concomitant]
  14. ERGOCALCIFEROL [Concomitant]
  15. ENSURE [Concomitant]
  16. FOLIC ACID [Concomitant]

REACTIONS (2)
  - CARDIAC FAILURE [None]
  - DEATH [None]
